FAERS Safety Report 11596725 (Version 1)
Quarter: 2015Q4

REPORT INFORMATION
  Report Type: Spontaneous
  Country: US (occurrence: None)
  Receive Date: 20151005
  Receipt Date: 20151005
  Transmission Date: 20160304
  Serious: No
  Sender: FDA-Public Use
  Company Number: None

PATIENT
  Age: 32 Year
  Sex: Male
  Weight: 103.42 kg

DRUGS (6)
  1. LEVOTHYROXINE. [Concomitant]
     Active Substance: LEVOTHYROXINE
  2. LEVETIRACETAM 500MG LUPIN [Suspect]
     Active Substance: LEVETIRACETAM
     Indication: TREMOR
     Route: 048
     Dates: start: 20150909, end: 20151002
  3. MENS MULTIVITAMIN [Concomitant]
  4. TIROSINT [Concomitant]
     Active Substance: LEVOTHYROXINE SODIUM
  5. LEVETIRACETAM 500MG LUPIN [Suspect]
     Active Substance: LEVETIRACETAM
     Indication: DYSGEUSIA
     Route: 048
     Dates: start: 20150909, end: 20151002
  6. LEVETIRACETAM 500MG LUPIN [Suspect]
     Active Substance: LEVETIRACETAM
     Indication: SYNCOPE
     Route: 048
     Dates: start: 20150909, end: 20151002

REACTIONS (1)
  - Hallucinations, mixed [None]

NARRATIVE: CASE EVENT DATE: 20151002
